FAERS Safety Report 5477620-9 (Version None)
Quarter: 2007Q4

REPORT INFORMATION
  Report Type: 
  Country: None (occurrence: None)
  Receive Date: 20071002
  Receipt Date: 20070917
  Transmission Date: 20080405
  Serious: Yes (Death, Hospitalization)
  Sender: FDA-Public Use
  Company Number: 230127K07BRA

PATIENT
  Sex: Female

DRUGS (1)
  1. REBIF                          (INTERFERON BETA) [Suspect]
     Dosage: 44 MCG, 3 IN 1 WEEKS
     Dates: start: 20031201, end: 20061230

REACTIONS (2)
  - INFECTION [None]
  - MULTIPLE SCLEROSIS RELAPSE [None]
